FAERS Safety Report 10216417 (Version 1)
Quarter: 2014Q2

REPORT INFORMATION
  Report Type: Spontaneous
  Country: US (occurrence: None)
  Receive Date: 20140603
  Receipt Date: 20140603
  Transmission Date: 20141212
  Serious: No
  Sender: FDA-Public Use
  Company Number: None

PATIENT
  Age: 53 Year
  Sex: Female
  Weight: 158.31 kg

DRUGS (2)
  1. SEROQUEL GENERIC ASTRA ZENIA?- GENERIC [Suspect]
     Indication: DEPRESSION
     Route: 048
     Dates: end: 201206
  2. SEROQUEL GENERIC ASTRA ZENIA?- GENERIC [Suspect]
     Indication: ANXIETY DISORDER
     Route: 048
     Dates: end: 201206

REACTIONS (6)
  - Blood glucose increased [None]
  - Malaise [None]
  - Nausea [None]
  - Hyperhidrosis [None]
  - Heart rate irregular [None]
  - Product substitution issue [None]
